FAERS Safety Report 19025977 (Version 1)
Quarter: 2021Q1

REPORT INFORMATION
  Report Type: Spontaneous
  Country: US (occurrence: US)
  Receive Date: 20210317
  Receipt Date: 20210317
  Transmission Date: 20210420
  Serious: Yes (Hospitalization)
  Sender: FDA-Public Use
  Company Number: None

PATIENT
  Age: 37 Year
  Sex: Female
  Weight: 83 kg

DRUGS (1)
  1. TEMOZOLOMIDE. [Suspect]
     Active Substance: TEMOZOLOMIDE
     Dates: end: 20210218

REACTIONS (10)
  - Neurodermatitis [None]
  - Pyrexia [None]
  - Dysphagia [None]
  - Chest X-ray abnormal [None]
  - Dyspnoea [None]
  - Swelling face [None]
  - Tongue disorder [None]
  - Rash pruritic [None]
  - Lymphadenopathy [None]
  - Throat irritation [None]

NARRATIVE: CASE EVENT DATE: 20210301
